FAERS Safety Report 7657062-8 (Version None)
Quarter: 2011Q3

REPORT INFORMATION
  Report Type: 
  Country: None (occurrence: None)
  Receive Date: 20110804
  Receipt Date: 20110210
  Transmission Date: 20111222
  Serious: No
  Sender: FDA-Public Use
  Company Number: US-GLAXOSMITHKLINE-A0812212A

PATIENT
  Age: 39 Year
  Sex: Female

DRUGS (4)
  1. NO CONCURRENT MEDICATION [Concomitant]
  2. FLOVENT [Suspect]
     Indication: ASTHMA
     Dosage: 2PUFF TWICE PER DAY
     Route: 055
  3. ADVAIR DISKUS 100/50 [Suspect]
     Indication: ASTHMA
     Dosage: 2PUFF TWICE PER DAY
     Route: 055
     Dates: end: 20110110
  4. IBUPROFEN [Concomitant]

REACTIONS (9)
  - PALPITATIONS [None]
  - HEART RATE INCREASED [None]
  - DYSPNOEA [None]
  - MYALGIA [None]
  - BLOOD PRESSURE INCREASED [None]
  - NERVOUSNESS [None]
  - ANXIETY [None]
  - ADVERSE REACTION [None]
  - PAIN IN JAW [None]
